FAERS Safety Report 14474327 (Version 2)
Quarter: 2018Q1

REPORT INFORMATION
  Report Type: Spontaneous
  Country: US (occurrence: US)
  Receive Date: 20180201
  Receipt Date: 20180202
  Transmission Date: 20180509
  Serious: Yes (Life-Threatening, Hospitalization)
  Sender: FDA-Public Use
  Company Number: US-PFIZER INC-2018042554

PATIENT
  Age: 50 Year
  Sex: Male

DRUGS (4)
  1. GEMCITABINE HYDROCHLORIDE. [Suspect]
     Active Substance: GEMCITABINE HYDROCHLORIDE
     Indication: PLEURAL NEOPLASM
     Dosage: UNK, CYCLIC
  2. PACLITAXEL. [Concomitant]
     Active Substance: PACLITAXEL
     Indication: PLEURAL NEOPLASM
     Dosage: UNK, WEEKLY (LOW DOSE)
  3. CARBOPLATIN. [Concomitant]
     Active Substance: CARBOPLATIN
     Indication: PLEURAL NEOPLASM
     Dosage: UNK, WEEKLY (LOW DOSE)
  4. DOCETAXEL. [Suspect]
     Active Substance: DOCETAXEL
     Indication: PLEURAL NEOPLASM
     Dosage: UNK, CYCLIC

REACTIONS (11)
  - Dehydration [Recovering/Resolving]
  - Hypophagia [Recovering/Resolving]
  - Acute kidney injury [Recovering/Resolving]
  - Toxicity to various agents [Recovering/Resolving]
  - Stomatitis [Recovering/Resolving]
  - Oral candidiasis [Recovering/Resolving]
  - Pneumonia [Recovering/Resolving]
  - Fatigue [Recovering/Resolving]
  - Vomiting [Recovering/Resolving]
  - Febrile neutropenia [Recovering/Resolving]
  - Nausea [Recovering/Resolving]
